FAERS Safety Report 8183620-0 (Version None)
Quarter: 2012Q1

REPORT INFORMATION
  Report Type: 
  Country: None (occurrence: None)
  Receive Date: 20120305
  Receipt Date: 20120302
  Transmission Date: 20120608
  Serious: Yes (Other)
  Sender: FDA-Public Use
  Company Number: US-PFIZER INC-2012057089

PATIENT
  Sex: Female
  Weight: 68 kg

DRUGS (4)
  1. TEGRETOL [Concomitant]
     Indication: AFFECTIVE DISORDER
     Dosage: 200 MG, 2X/DAY
  2. ASPIRIN [Concomitant]
     Indication: HYPERTENSION
     Dosage: 325 MG, DAILY
  3. VALIUM [Concomitant]
     Dosage: 10 MG, AS NEEDED
  4. GEODON [Suspect]
     Indication: BIPOLAR DISORDER
     Dosage: 80 MG, 2X/DAY
     Route: 048

REACTIONS (2)
  - BLOOD GLUCOSE FLUCTUATION [None]
  - PANCREATITIS [None]
